FAERS Safety Report 5956507-9 (Version None)
Quarter: 2008Q4

REPORT INFORMATION
  Report Type: 
  Country: None (occurrence: None)
  Receive Date: 20081118
  Receipt Date: 20081117
  Transmission Date: 20090506
  Serious: Yes (Death)
  Sender: FDA-Public Use
  Company Number: A0757092A

PATIENT
  Age: 83 Year
  Sex: Male
  Weight: 77 kg

DRUGS (4)
  1. SERETIDE [Suspect]
     Route: 055
     Dates: start: 20070401, end: 20081010
  2. BAMIFIX [Concomitant]
     Dates: start: 20070101, end: 20081010
  3. PRELONE [Concomitant]
     Dates: start: 20080401, end: 20081010
  4. OMEPRAZOLE [Concomitant]
     Dates: start: 20060101, end: 20081010

REACTIONS (1)
  - INFARCTION [None]
